FAERS Safety Report 6913402-6 (Version None)
Quarter: 2010Q3

REPORT INFORMATION
  Report Type: 
  Country: None (occurrence: None)
  Receive Date: 20100809
  Receipt Date: 20100726
  Transmission Date: 20110219
  Serious: Yes (Hospitalization, Other)
  Sender: FDA-Public Use
  Company Number: US-ELI_LILLY_AND_COMPANY-US201006007906

PATIENT
  Sex: Female
  Weight: 54.875 kg

DRUGS (8)
  1. EVISTA [Suspect]
     Indication: OSTEOPENIA
     Dosage: 60 MG, DAILY (1/D)
     Dates: start: 20030401
  2. EVISTA [Suspect]
     Dosage: 60 MG, UNK
     Dates: start: 20100624, end: 20100627
  3. FORTEO [Suspect]
  4. ADALAT [Concomitant]
     Indication: RAYNAUD'S PHENOMENON
     Dosage: 30 MG, UNK
     Dates: start: 19980501
  5. CALCIUM [Concomitant]
  6. MULTIPLE VITAMINS [Concomitant]
  7. ASPIRIN [Concomitant]
  8. ACTONEL [Concomitant]
     Indication: OSTEOPOROSIS
     Dosage: 150 MG, MONTHLY (1/M)
     Dates: start: 20080429

REACTIONS (18)
  - ABDOMINAL DISCOMFORT [None]
  - ANXIETY [None]
  - BONE DENSITY DECREASED [None]
  - BONE PAIN [None]
  - BURNING SENSATION [None]
  - FEELING ABNORMAL [None]
  - FEELING HOT [None]
  - GASTROOESOPHAGEAL REFLUX DISEASE [None]
  - HAEMOPTYSIS [None]
  - INFLAMMATION [None]
  - INSOMNIA [None]
  - MALAISE [None]
  - MYALGIA [None]
  - NAUSEA [None]
  - OEDEMA PERIPHERAL [None]
  - OVARIAN CYST RUPTURED [None]
  - SENSATION OF PRESSURE [None]
  - VOLVULUS [None]
